FAERS Safety Report 7309168-0 (Version None)
Quarter: 2011Q1

REPORT INFORMATION
  Report Type: 
  Country: None (occurrence: None)
  Receive Date: 20110223
  Receipt Date: 20110214
  Transmission Date: 20110831
  Serious: Yes (Other)
  Sender: FDA-Public Use
  Company Number: GB-ELI_LILLY_AND_COMPANY-GB201101004068

PATIENT
  Sex: Male
  Weight: 75 kg

DRUGS (4)
  1. CIALIS [Suspect]
     Dosage: 20 MG, 2/W
  2. ANTIHYPERTENSIVES [Concomitant]
     Dosage: 1 D/F, UNK
  3. CIALIS [Suspect]
     Dosage: 5 MG, DAILY (1/D)
     Dates: start: 20110101
  4. CIALIS [Suspect]
     Dosage: 10 MG, OTHER
     Dates: end: 20101231

REACTIONS (5)
  - RETINITIS PIGMENTOSA [None]
  - WRONG TECHNIQUE IN DRUG USAGE PROCESS [None]
  - DRUG EFFECT DECREASED [None]
  - OPTIC DISC DRUSEN [None]
  - UNDERDOSE [None]
